FAERS Safety Report 4562849-4 (Version None)
Quarter: 2005Q1

REPORT INFORMATION
  Report Type: 
  Country: None (occurrence: None)
  Receive Date: 20050124
  Receipt Date: 20050112
  Transmission Date: 20050727
  Serious: Yes (Other)
  Sender: FDA-Public Use
  Company Number: FR-SHR-03-000812

PATIENT
  Age: 58 Year
  Sex: Female
  Weight: 100.0181 kg

DRUGS (2)
  1. CLIMARA [Suspect]
     Indication: MENOPAUSE
     Dosage: 1 OTHER, 1X/WEEK, TRANSDERMAL
     Route: 062
     Dates: start: 19990430, end: 20030106
  2. LUTERAN TABLET [Concomitant]

REACTIONS (1)
  - ENDOMETRIAL CANCER [None]
